FAERS Safety Report 5373595-1 (Version None)
Quarter: 2007Q2

REPORT INFORMATION
  Report Type: 
  Country: None (occurrence: None)
  Receive Date: 20070626
  Receipt Date: 20060728
  Transmission Date: 20071010
  Serious: Yes (Other)
  Sender: FDA-Public Use
  Company Number: 457381

PATIENT
  Age: 11 Year
  Sex: Male

DRUGS (3)
  1. KLONOPIN [Suspect]
     Indication: EPILEPSY
  2. TOPAMAX [Suspect]
     Indication: EPILEPSY
  3. TEGRETOL [Suspect]
     Indication: EPILEPSY

REACTIONS (3)
  - CONVULSION [None]
  - DRUG INEFFECTIVE [None]
  - GAIT DISTURBANCE [None]
